FAERS Safety Report 11641849 (Version 2)
Quarter: 2015Q4

REPORT INFORMATION
  Report Type: Spontaneous
  Country: DE (occurrence: DE)
  Receive Date: 20151019
  Receipt Date: 20151218
  Transmission Date: 20160304
  Serious: Yes (Life-Threatening, Hospitalization, Other)
  Sender: FDA-Public Use
  Company Number: DE-JNJFOC-20151008776

PATIENT
  Sex: Female

DRUGS (8)
  1. COTRIMOXAZOL [Concomitant]
     Active Substance: SULFAMETHOXAZOLE\TRIMETHOPRIM
  2. IMBRUVICA [Suspect]
     Active Substance: IBRUTINIB
     Indication: CHRONIC LYMPHOCYTIC LEUKAEMIA
     Route: 048
     Dates: start: 20140312, end: 201507
  3. AVALOX [Concomitant]
     Active Substance: MOXIFLOXACIN HYDROCHLORIDE
  4. IDEOS [Concomitant]
     Active Substance: CALCIUM CARBONATE\CHOLECALCIFEROL
  5. PREDNISONE. [Concomitant]
     Active Substance: PREDNISONE
  6. ACYCLOVIR. [Concomitant]
     Active Substance: ACYCLOVIR
  7. ENTOCORT [Concomitant]
     Active Substance: BUDESONIDE
  8. FLUCONAZOL [Concomitant]
     Active Substance: FLUCONAZOLE

REACTIONS (4)
  - Septic shock [Recovered/Resolved with Sequelae]
  - Graft versus host disease [Unknown]
  - Toxic epidermal necrolysis [Recovered/Resolved with Sequelae]
  - Arthropod sting [Recovered/Resolved with Sequelae]

NARRATIVE: CASE EVENT DATE: 201506
